FAERS Safety Report 10557025 (Version 1)
Quarter: 2014Q4

REPORT INFORMATION
  Report Type: Spontaneous
  Country: US (occurrence: None)
  Receive Date: 20141029
  Receipt Date: 20141029
  Transmission Date: 20150529
  Serious: No
  Sender: FDA-Public Use
  Company Number: None

PATIENT
  Age: 73 Year
  Sex: Female
  Weight: 53.07 kg

DRUGS (1)
  1. VALSARTAN. [Suspect]
     Active Substance: VALSARTAN
     Indication: HYPERTENSION
     Route: 048
     Dates: start: 20141002, end: 20141016

REACTIONS (5)
  - Product quality issue [None]
  - Product substitution issue [None]
  - Malaise [None]
  - Product formulation issue [None]
  - Blood pressure increased [None]

NARRATIVE: CASE EVENT DATE: 20141002
